FAERS Safety Report 4713945-X (Version None)
Quarter: 2005Q3

REPORT INFORMATION
  Report Type: 
  Country: None (occurrence: None)
  Receive Date: 20050713
  Receipt Date: 20050624
  Transmission Date: 20060218
  Serious: Yes (Hospitalization)
  Sender: FDA-Public Use
  Company Number: DE_050616284

PATIENT
  Age: 64 Year
  Sex: Female
  Weight: 98 kg

DRUGS (7)
  1. ZYPREXA [Suspect]
     Indication: BIPOLAR DISORDER
     Dosage: 20 M DAY
     Route: 048
     Dates: start: 20041021
  2. QUILONUM [Concomitant]
  3. TEGRETOL [Concomitant]
  4. LORAZEPAM [Concomitant]
  5. NATRILIX (INDAPAMIDE) [Concomitant]
  6. ACTRAPID (INSULIN HUMAN) [Concomitant]
  7. DIOVAN [Concomitant]

REACTIONS (6)
  - BALANCE DISORDER [None]
  - COORDINATION ABNORMAL [None]
  - DYSARTHRIA [None]
  - FALL [None]
  - RESTLESSNESS [None]
  - SEDATION [None]
